FAERS Safety Report 23145632 (Version 1)
Quarter: 2023Q4

REPORT INFORMATION
  Report Type: Report from Study
  Country: FR (occurrence: FR)
  Receive Date: 20231103
  Receipt Date: 20231103
  Transmission Date: 20240109
  Serious: Yes (Hospitalization, Other)
  Sender: FDA-Public Use
  Company Number: FR-GILEAD-2023-0649763

PATIENT
  Age: 76 Year
  Sex: Male

DRUGS (4)
  1. AXICABTAGENE CILOLEUCEL [Suspect]
     Active Substance: AXICABTAGENE CILOLEUCEL
     Indication: Diffuse large B-cell lymphoma
     Route: 065
  2. ASPIRIN [Concomitant]
     Active Substance: ASPIRIN
     Indication: Transient ischaemic attack
     Dosage: 75 MG
  3. ASPIRIN [Concomitant]
     Active Substance: ASPIRIN
     Indication: Basal ganglia stroke
     Dosage: 160 MG
  4. ASPIRIN [Concomitant]
     Active Substance: ASPIRIN
     Indication: Cerebellar stroke

REACTIONS (4)
  - Basal ganglia stroke [Unknown]
  - Cerebellar stroke [Unknown]
  - Immune effector cell-associated neurotoxicity syndrome [Unknown]
  - Cytokine release syndrome [Unknown]
